FAERS Safety Report 20952100 (Version 5)
Quarter: 2022Q3

REPORT INFORMATION
  Report Type: Spontaneous
  Country: US (occurrence: US)
  Receive Date: 20220613
  Receipt Date: 20220817
  Transmission Date: 20221027
  Serious: Yes (Hospitalization, Other)
  Sender: FDA-Public Use
  Company Number: US-PFIZER INC-202200825340

PATIENT
  Age: 44 Year
  Sex: Female
  Weight: 66.122 kg

DRUGS (39)
  1. PAXLOVID [Suspect]
     Active Substance: NIRMATRELVIR\RITONAVIR
     Indication: COVID-19 treatment
     Dosage: [PF-07321332 300 MG]/[RITONAVIR 100 MG]; 2X/DAY
     Route: 048
     Dates: start: 20220521, end: 20220526
  2. ALBUTEROL SULFATE [Concomitant]
     Active Substance: ALBUTEROL SULFATE
     Indication: Asthma
     Dosage: UNK
     Dates: start: 20220521
  3. ALBUTEROL SULFATE [Concomitant]
     Active Substance: ALBUTEROL SULFATE
     Indication: Wheezing
     Dosage: 90 UG, AS NEEDED (INHALE 2 PUFFS EVERY 4 (FOUR) HOURS AS NEEDED FOR WHEEZING-INHALIATION)
     Dates: start: 20220523
  4. ALBUTEROL SULFATE [Concomitant]
     Active Substance: ALBUTEROL SULFATE
     Dosage: UNK, (INHALE 2 PUFFS EVERY 18 G HOURS AS NEEDED FOR WHEEZING.)
  5. COLACE [Concomitant]
     Active Substance: DOCUSATE SODIUM
     Dosage: 100 MG, 2X/DAY
     Route: 048
  6. DECADRON [Concomitant]
     Active Substance: DEXAMETHASONE
     Indication: Asthma
     Dosage: 6 MG, DAILY
     Route: 048
     Dates: start: 20220520, end: 20220525
  7. DECADRON [Concomitant]
     Active Substance: DEXAMETHASONE
     Indication: Candida infection
     Dosage: UNK
     Dates: start: 20220521
  8. DECADRON [Concomitant]
     Active Substance: DEXAMETHASONE
     Dosage: 6 MG
     Dates: start: 20220528
  9. DECADRON [Concomitant]
     Active Substance: DEXAMETHASONE
     Dosage: 5 MG
     Dates: start: 20220602
  10. DELTASONE [Concomitant]
     Active Substance: PREDNISONE
     Dosage: TAKE 7 TABLETS (35 MG TOTAL) FOR 3 DAYS
     Route: 048
     Dates: start: 20220606, end: 20220606
  11. DELTASONE [Concomitant]
     Active Substance: PREDNISONE
     Dosage: 6 TABLETS (30 MG TOTAL) FOR 3 DAYS
     Route: 048
     Dates: start: 20220606, end: 20220711
  12. DELTASONE [Concomitant]
     Active Substance: PREDNISONE
     Dosage: 4 TABLETS (20 MG TOTAL FOR 3 DAYS)
     Route: 048
     Dates: start: 20220606, end: 20220706
  13. DELTASONE [Concomitant]
     Active Substance: PREDNISONE
     Dosage: 3 TABLETS (15 MG TOTAL) FOR 3 DAYS
  14. DELTASONE [Concomitant]
     Active Substance: PREDNISONE
     Dosage: 2 TABLETS (10 MG TOTAL) FOR 3 DAYS
  15. DELTASONE [Concomitant]
     Active Substance: PREDNISONE
     Dosage: 1 TABLET (5 MG TOTAL)FOR 3DAYS
     Dates: start: 20220606, end: 20220706
  16. DESYREL [Concomitant]
     Active Substance: TRAZODONE HYDROCHLORIDE
     Dosage: 50 MG, 1X/DAY (TAKE 1 TABLET (5O MG TOTAL) BY MOUTH AT BEDTIME)
     Route: 048
     Dates: start: 20220605, end: 20220628
  17. DESYREL [Concomitant]
     Active Substance: TRAZODONE HYDROCHLORIDE
     Dosage: 50 MG, DAILY (AT BEDTIME)
     Route: 048
     Dates: start: 20220628
  18. DIFLUCAN [Concomitant]
     Active Substance: FLUCONAZOLE
     Indication: Fungal infection
     Dosage: 100 MG  (AT BEDTIME FOR 7 DOSES)
     Route: 048
     Dates: start: 20220605, end: 20220612
  19. DIFLUCAN [Concomitant]
     Active Substance: FLUCONAZOLE
     Dosage: 200 MG, DAILY
     Route: 048
     Dates: start: 20220615
  20. DROSPIRENONE [Concomitant]
     Active Substance: DROSPIRENONE
     Dosage: UNK
  21. DULCOLAX (BISACODYL) [Concomitant]
     Active Substance: BISACODYL
     Indication: Constipation
     Dosage: INSERT 1 SUPPOSITORY (10 MG TOTAL) ONCE DAILY FOR UP TO 10 DAYS
     Route: 054
     Dates: start: 20220605, end: 20220615
  22. ENULOSE [Concomitant]
     Active Substance: LACTULOSE
     Indication: Constipation
     Dosage: TAKE 15 ML (10G TOTAL) BY MOUTH 3 TIMES A DAY AS NEEDED
     Route: 048
     Dates: start: 20220606, end: 20220628
  23. INDERAL [Concomitant]
     Active Substance: PROPRANOLOL HYDROCHLORIDE
     Dosage: AT BEDTIME (1 TABLET (20 MG TOTAL)
     Route: 048
     Dates: start: 20220605, end: 20220606
  24. INDERAL [Concomitant]
     Active Substance: PROPRANOLOL HYDROCHLORIDE
     Dosage: IN THE MORNING AND AFTERNOON (1 TABLET (10 MG TOTAL)
     Route: 048
     Dates: start: 20220605, end: 20220606
  25. LOPRESSOR [Concomitant]
     Active Substance: METOPROLOL TARTRATE
     Dosage: (TAKE 1 TABLET BY 60 TABLET)
     Route: 048
     Dates: start: 20220606, end: 20220628
  26. LOPRESSOR [Concomitant]
     Active Substance: METOPROLOL TARTRATE
     Dosage: (TAKE 1 TABLET BY 60 TABLET)
     Route: 048
     Dates: start: 20220628
  27. MEPRON [Concomitant]
     Active Substance: ATOVAQUONE
     Dosage: 10 ML, DAILY
     Route: 048
     Dates: start: 20220620
  28. MYCOSTATIN [Concomitant]
     Active Substance: NYSTATIN
     Indication: Oral candidiasis
     Dosage: TAKE 5 ML(500,000 UNITS TOTAL) FOR 29 DOSES/SWISH IN MOUTH FOR SEVERAL MINUTES THEN SPIT OUT
     Route: 048
     Dates: start: 20220605, end: 20220613
  29. PREDNISONE ACETATE [Concomitant]
     Active Substance: PREDNISONE ACETATE
     Dosage: 25 MG, 1X/DAY
     Route: 048
  30. PRILOSEC [Concomitant]
     Active Substance: OMEPRAZOLE MAGNESIUM
     Dosage: 20 MG, 2X/DAY
     Route: 048
  31. PROTONIX [Concomitant]
     Active Substance: PANTOPRAZOLE SODIUM
     Dosage: 30 MINUTES BEFORE BREAKFAST. CONTINUE FOR AS LONG AS YOU ARE ON STEROIDS
     Route: 048
     Dates: start: 20220606, end: 20220707
  32. SENNOSIDES [Concomitant]
     Active Substance: SENNOSIDES
     Dosage: 8.6-50 MG
     Route: 048
  33. SENOKOT-S [Concomitant]
     Active Substance: DOCUSATE SODIUM\SENNOSIDES
     Dosage: 2 DF, 2X/DAY
     Route: 048
     Dates: start: 20220605, end: 20220705
  34. SINGULAIR [Concomitant]
     Active Substance: MONTELUKAST SODIUM
     Indication: Asthma
     Dosage: AT BEDTIME (TAKE 1 TABLET BY 30 TABLET)
     Route: 048
     Dates: start: 20211124
  35. SYMBICORT [Concomitant]
     Active Substance: BUDESONIDE\FORMOTEROL FUMARATE DIHYDRATE
     Indication: Asthma
     Dosage: INHALE 2PUFFS-INHALATION
     Dates: start: 20220521, end: 20220707
  36. VITAMIN D3 [Concomitant]
     Active Substance: CHOLECALCIFEROL
     Dosage: 5,000UNITS TOTAL
     Route: 048
     Dates: start: 20220606, end: 20220707
  37. YAZ [Concomitant]
     Active Substance: DROSPIRENONE\ETHINYL ESTRADIOL
     Indication: Constipation
     Dosage: EVERY EVENING (3-0.02 MG PER TABLET)
     Route: 048
     Dates: end: 20220707
  38. YAZ [Concomitant]
     Active Substance: DROSPIRENONE\ETHINYL ESTRADIOL
     Indication: Oral contraception
  39. VITAMIN B12 [Concomitant]
     Active Substance: CYANOCOBALAMIN
     Dosage: 600

REACTIONS (50)
  - Myelitis [Not Recovered/Not Resolved]
  - Cytokine storm [Not Recovered/Not Resolved]
  - Autonomic nervous system imbalance [Recovering/Resolving]
  - Polyneuropathy [Recovering/Resolving]
  - Neuropathy peripheral [Recovering/Resolving]
  - Muscular weakness [Recovering/Resolving]
  - Faecaloma [Recovering/Resolving]
  - Tachycardia [Not Recovered/Not Resolved]
  - Impaired gastric emptying [Not Recovered/Not Resolved]
  - Orthostatic intolerance [Not Recovered/Not Resolved]
  - Loss of consciousness [Unknown]
  - Heart rate increased [Not Recovered/Not Resolved]
  - Blood pressure increased [Unknown]
  - Abdominal pain [Recovering/Resolving]
  - Constipation [Not Recovered/Not Resolved]
  - Disease recurrence [Not Recovered/Not Resolved]
  - Dysgeusia [Unknown]
  - Abdominal discomfort [Unknown]
  - Dehydration [Unknown]
  - Insomnia [Unknown]
  - Neuralgia [Recovered/Resolved]
  - Paraesthesia [Recovered/Resolved]
  - Paraesthesia [Not Recovered/Not Resolved]
  - Chest pain [Unknown]
  - Oral candidiasis [Unknown]
  - Dizziness [Recovered/Resolved]
  - Trismus [Unknown]
  - Feeling abnormal [Recovered/Resolved]
  - Hyperglycaemia [Unknown]
  - Dyspnoea [Recovering/Resolving]
  - Asthenia [Not Recovered/Not Resolved]
  - Dry eye [Unknown]
  - Dry mouth [Unknown]
  - Abdominal distension [Not Recovered/Not Resolved]
  - Contusion [Unknown]
  - Pain in extremity [Unknown]
  - Hypoaesthesia [Recovering/Resolving]
  - Gastrointestinal disorder [Unknown]
  - Decreased appetite [Unknown]
  - Weight decreased [Unknown]
  - Hypotension [Not Recovered/Not Resolved]
  - Glycosylated haemoglobin increased [Unknown]
  - COVID-19 [Unknown]
  - Disease recurrence [Unknown]
  - Early satiety [Not Recovered/Not Resolved]
  - Feeling hot [Unknown]
  - Arthralgia [Unknown]
  - Paraesthesia oral [Unknown]
  - Flatulence [Unknown]
  - Gastric disorder [Not Recovered/Not Resolved]

NARRATIVE: CASE EVENT DATE: 20220101
